FAERS Safety Report 9132145 (Version 2)
Quarter: 2013Q2

REPORT INFORMATION
  Report Type: Spontaneous
  Country: SI (occurrence: SI)
  Receive Date: 20130301
  Receipt Date: 20130607
  Transmission Date: 20140414
  Serious: Yes (Other)
  Sender: FDA-Public Use
  Company Number: SI-AMGEN-SVNSP2013011424

PATIENT
  Age: 68 Year
  Sex: Female
  Weight: 69 kg

DRUGS (2)
  1. PROLIA [Suspect]
     Indication: OSTEOPOROSIS
     Dosage: 1 UNK, Q6MO
     Route: 058
     Dates: start: 201112
  2. FLIXOTIDE [Concomitant]
     Indication: ASTHMA
     Dosage: 200 MUG, BID
     Route: 048

REACTIONS (1)
  - Pemphigus [Recovering/Resolving]
